FAERS Safety Report 13771085 (Version 1)
Quarter: 2017Q3

REPORT INFORMATION
  Report Type: Spontaneous
  Country: US (occurrence: US)
  Receive Date: 20170720
  Receipt Date: 20170720
  Transmission Date: 20171127
  Serious: Yes (Other)
  Sender: FDA-Public Use
  Company Number: US-TEVA-694492USA

PATIENT
  Sex: Male

DRUGS (2)
  1. LISINOPRIL. [Suspect]
     Active Substance: LISINOPRIL
     Indication: HYPERTENSION
     Dosage: 1 TABLET
  2. LISINOPRIL. [Interacting]
     Active Substance: LISINOPRIL
     Dosage: 2 TABLETS

REACTIONS (5)
  - Drug interaction [Unknown]
  - Blood pressure increased [Recovered/Resolved]
  - Adverse event [Unknown]
  - Product substitution issue [Unknown]
  - Drug ineffective [Unknown]
